FAERS Safety Report 7504366-5 (Version None)
Quarter: 2011Q2

REPORT INFORMATION
  Report Type: 
  Country: None (occurrence: None)
  Receive Date: 20110525
  Receipt Date: 20110523
  Transmission Date: 20111010
  Serious: Yes (Other)
  Sender: FDA-Public Use
  Company Number: CHPA2011GB06647

PATIENT
  Sex: Male

DRUGS (6)
  1. NICOTINE [Suspect]
     Dosage: UNK, UNK
     Route: 062
  2. NICOTINE [Suspect]
     Indication: SMOKING CESSATION THERAPY
     Dosage: 7 MG, QD
     Route: 062
  3. MULTI-VITAMINS [Concomitant]
     Dosage: UNK
  4. NICOTINE [Suspect]
     Dosage: 14 MG, QD
  5. NICOTINE [Suspect]
     Dosage: 21 MG, QD
     Route: 062
     Dates: start: 20110301
  6. COD-LIVER OIL [Concomitant]

REACTIONS (9)
  - HYPERTENSION [None]
  - HYPERHIDROSIS [None]
  - IRRITABILITY [None]
  - COUGH [None]
  - FEELING ABNORMAL [None]
  - RHINORRHOEA [None]
  - FATIGUE [None]
  - DYSPNOEA [None]
  - INSOMNIA [None]
